FAERS Safety Report 23008368 (Version 2)
Quarter: 2023Q4

REPORT INFORMATION
  Report Type: Spontaneous
  Country: FR (occurrence: FR)
  Receive Date: 20230929
  Receipt Date: 20231129
  Transmission Date: 20240109
  Serious: Yes (Other)
  Sender: FDA-Public Use
  Company Number: FR-002147023-NVSC2023FR205070

PATIENT
  Age: 81 Year
  Sex: Female

DRUGS (6)
  1. LUCENTIS [Suspect]
     Active Substance: RANIBIZUMAB
     Indication: Age-related macular degeneration
     Dosage: 10 MG/ML, QMO (1ST DOSE)
     Route: 065
     Dates: start: 202301, end: 202301
  2. LUCENTIS [Suspect]
     Active Substance: RANIBIZUMAB
     Dosage: 10 MG/ML, QMO (2ND DOSE)
     Route: 065
     Dates: start: 202302, end: 202302
  3. LUCENTIS [Suspect]
     Active Substance: RANIBIZUMAB
     Dosage: 10 MG/ML, QMO (3RD DOSE)
     Route: 065
     Dates: start: 202303, end: 202303
  4. LUCENTIS [Suspect]
     Active Substance: RANIBIZUMAB
     Dosage: 10 MG/ML, QMO (4TH DOSE)
     Route: 065
     Dates: start: 202305, end: 202305
  5. LUCENTIS [Suspect]
     Active Substance: RANIBIZUMAB
     Dosage: 10 MG/ML, QMO (5TH DOSE)
     Route: 065
     Dates: start: 202307, end: 202307
  6. LUCENTIS [Suspect]
     Active Substance: RANIBIZUMAB
     Dosage: 10 MG/ML, (6TH DOSE)
     Route: 065

REACTIONS (1)
  - Cerebrovascular accident [Unknown]
